FAERS Safety Report 23875026 (Version 1)
Quarter: 2024Q2

REPORT INFORMATION
  Report Type: Spontaneous
  Country: US (occurrence: None)
  Receive Date: 20240518
  Receipt Date: 20240518
  Transmission Date: 20240716
  Serious: Yes (Disabling)
  Sender: FDA-Public Use
  Company Number: None

PATIENT
  Age: 53 Year
  Sex: Female
  Weight: 85.5 kg

DRUGS (7)
  1. CIPROFLOXACIN [Suspect]
     Active Substance: CIPROFLOXACIN
     Indication: Urinary tract infection
     Dosage: OTHER QUANTITY : 14 TABLET(S);?FREQUENCY : TWICE A DAY;?
     Route: 048
     Dates: start: 20230731, end: 20230807
  2. MAGNESIUM GLYCINATE [Concomitant]
     Active Substance: MAGNESIUM GLYCINATE
  3. CHONDROITIN SULFATE (BOVINE)\GLUCOSAMINE HYDROCHLORIDE [Concomitant]
     Active Substance: CHONDROITIN SULFATE (BOVINE)\GLUCOSAMINE HYDROCHLORIDE
  4. VITAMIN D3 [Concomitant]
     Active Substance: CHOLECALCIFEROL
  5. VITAMIN C [Concomitant]
     Active Substance: ASCORBIC ACID
  6. Collagen powder [Concomitant]
  7. Shao Yao Gan Cao Wan [Concomitant]

REACTIONS (11)
  - Bradycardia [None]
  - Tendon discomfort [None]
  - Muscle atrophy [None]
  - Tendon disorder [None]
  - Asthenia [None]
  - Muscle spasms [None]
  - Restless legs syndrome [None]
  - Muscle spasms [None]
  - Disability [None]
  - Discomfort [None]
  - Impaired work ability [None]

NARRATIVE: CASE EVENT DATE: 20230731
